FAERS Safety Report 9603131 (Version 2)
Quarter: 2013Q4

REPORT INFORMATION
  Report Type: Spontaneous
  Country: CO (occurrence: CO)
  Receive Date: 20131007
  Receipt Date: 20131007
  Transmission Date: 20140711
  Serious: Yes (Life-Threatening)
  Sender: FDA-Public Use
  Company Number: CO-MERCK-1309COL002578

PATIENT
  Age: 53 Year
  Sex: Female

DRUGS (3)
  1. REBETOL [Suspect]
     Indication: HEPATITIS C
     Dosage: TOTAL DAILY DOSE 1000MG, DAILY
     Route: 048
     Dates: start: 20130423
  2. VICTRELIS [Suspect]
     Indication: HEPATITIS C
     Dosage: TOTAL DAILY DOSE 2400MG, DAILY
     Route: 048
     Dates: start: 20130423
  3. PEGASYS [Suspect]
     Indication: HEPATITIS C
     Dosage: 180 MICROGRAM, WEEKLY
     Route: 058
     Dates: start: 20130423

REACTIONS (6)
  - Virologic failure [Not Recovered/Not Resolved]
  - Weight decreased [Not Recovered/Not Resolved]
  - Food intolerance [Not Recovered/Not Resolved]
  - Vomiting [Not Recovered/Not Resolved]
  - Drug administration error [Unknown]
  - Drug ineffective [Not Recovered/Not Resolved]
